FAERS Safety Report 19901540 (Version 1)
Quarter: 2021Q3

REPORT INFORMATION
  Report Type: Spontaneous
  Country: US (occurrence: US)
  Receive Date: 20210930
  Receipt Date: 20210930
  Transmission Date: 20211014
  Serious: Yes (Hospitalization)
  Sender: FDA-Public Use
  Company Number: None

PATIENT
  Age: 65 Year
  Sex: Male
  Weight: 68.85 kg

DRUGS (11)
  1. REMDESIVIR. [Concomitant]
     Active Substance: REMDESIVIR
     Dates: start: 20210923, end: 20210928
  2. VANCOMYCIN [Concomitant]
     Active Substance: VANCOMYCIN
     Dates: start: 20210923
  3. DEXAMETHASONE. [Concomitant]
     Active Substance: DEXAMETHASONE
     Dates: start: 20210923, end: 20210928
  4. ZOSYN [Concomitant]
     Active Substance: PIPERACILLIN SODIUM\TAZOBACTAM SODIUM
     Dates: start: 20210923, end: 20210923
  5. XARELTO [Concomitant]
     Active Substance: RIVAROXABAN
     Dates: start: 20210923, end: 20210924
  6. PEPCID [Concomitant]
     Active Substance: FAMOTIDINE
     Dates: start: 20210924, end: 20210928
  7. REGEN?COV [Suspect]
     Active Substance: CASIRIVIMAB\IMDEVIMAB
     Indication: COVID-19
     Dosage: ?          OTHER FREQUENCY:ONCE;?
     Route: 042
     Dates: start: 20210923, end: 20210923
  8. ALBUTEROL. [Concomitant]
     Active Substance: ALBUTEROL
     Dates: start: 20210923, end: 20210928
  9. KLOR?CON [Concomitant]
     Active Substance: POTASSIUM CHLORIDE
     Dates: start: 20210925, end: 20210925
  10. TOPROL XL [Concomitant]
     Active Substance: METOPROLOL SUCCINATE
     Dates: start: 20210924, end: 20210928
  11. PROTONIX [Concomitant]
     Active Substance: PANTOPRAZOLE SODIUM
     Dates: start: 20210924, end: 20210928

REACTIONS (8)
  - Anaemia [None]
  - Sepsis [None]
  - Platelet count decreased [None]
  - COVID-19 pneumonia [None]
  - Hypoxia [None]
  - Dyspnoea [None]
  - Acute respiratory failure [None]
  - Haemoglobin decreased [None]

NARRATIVE: CASE EVENT DATE: 20210923
